FAERS Safety Report 7969544-X (Version None)
Quarter: 2011Q4

REPORT INFORMATION
  Report Type: 
  Country: None (occurrence: None)
  Receive Date: 20111212
  Receipt Date: 20111207
  Transmission Date: 20120403
  Serious: No
  Sender: FDA-Public Use
  Company Number: US-PFIZER INC-2011299248

PATIENT
  Sex: Female
  Weight: 68.027 kg

DRUGS (5)
  1. DESYREL [Concomitant]
     Indication: SLEEP DISORDER
     Dosage: UNK
  2. LYRICA [Suspect]
     Indication: FIBROMYALGIA
     Dosage: 150 MG, 3X/DAY
     Route: 048
     Dates: start: 20090101
  3. XANAX [Concomitant]
     Indication: STRESS
     Dosage: UNK
  4. VICODIN [Concomitant]
     Indication: FIBROMYALGIA
     Dosage: UNK
  5. ADDERALL 5 [Concomitant]
     Dosage: UNK

REACTIONS (2)
  - DEPRESSION [None]
  - APATHY [None]
